FAERS Safety Report 8503434-9 (Version None)
Quarter: 2012Q3

REPORT INFORMATION
  Report Type: 
  Country: None (occurrence: None)
  Receive Date: 20120711
  Receipt Date: 20120703
  Transmission Date: 20120928
  Serious: Yes (Hospitalization)
  Sender: FDA-Public Use
  Company Number: US-GLAXOSMITHKLINE-A0813869A

PATIENT
  Age: 64 Year
  Sex: Female
  Weight: 85.9 kg

DRUGS (1)
  1. AVANDIA [Suspect]
     Indication: TYPE 2 DIABETES MELLITUS
     Dosage: 4MG PER DAY
     Route: 048
     Dates: end: 20040301

REACTIONS (6)
  - MYOCARDIAL INFARCTION [None]
  - MACULAR OEDEMA [None]
  - MOVEMENT DISORDER [None]
  - HEART INJURY [None]
  - MONOPLEGIA [None]
  - CEREBROVASCULAR ACCIDENT [None]
